FAERS Safety Report 12413173 (Version 1)
Quarter: 2016Q2

REPORT INFORMATION
  Report Type: Spontaneous
  Country: US (occurrence: US)
  Receive Date: 20160527
  Receipt Date: 20160527
  Transmission Date: 20160815
  Serious: Yes (Other)
  Sender: FDA-Public Use
  Company Number: US-THE MENTHOLATUM COMPANY-1052921

PATIENT
  Age: 49 Year
  Sex: Female

DRUGS (1)
  1. ROHTO COOL [Suspect]
     Active Substance: NAPHAZOLINE HYDROCHLORIDE\POLYSORBATE 80
     Indication: EYE IRRITATION
     Route: 047
     Dates: start: 20160512, end: 20160512

REACTIONS (1)
  - Eye haemorrhage [Recovered/Resolved]

NARRATIVE: CASE EVENT DATE: 20160513
